FAERS Safety Report 14831550 (Version 1)
Quarter: 2018Q2

REPORT INFORMATION
  Report Type: Spontaneous
  Country: US (occurrence: US)
  Receive Date: 20180409
  Receipt Date: 20180409
  Transmission Date: 20180711
  Serious: Yes (Other)
  Sender: FDA-Public Use
  Company Number: None

PATIENT
  Age: 81 Year
  Sex: Female
  Weight: 67.5 kg

DRUGS (13)
  1. RANITIDINE. [Suspect]
     Active Substance: RANITIDINE
     Indication: HYPERCHLORHYDRIA
     Dosage: ?          QUANTITY:1 TABLET(S);?
     Route: 048
     Dates: start: 20180409, end: 20180409
  2. CARVEDILOL. [Concomitant]
     Active Substance: CARVEDILOL
  3. OXYGEN. [Concomitant]
     Active Substance: OXYGEN
  4. INSULIN [Concomitant]
     Active Substance: INSULIN NOS
  5. GENERATOR AT NIGHT [Concomitant]
  6. HYDRALAZINE [Concomitant]
     Active Substance: HYDRALAZINE HYDROCHLORIDE
  7. HYDROCHLOROTHIAZINE [Concomitant]
  8. IRON [Concomitant]
     Active Substance: IRON
  9. ATORVASTARIN [Concomitant]
  10. AMLODIPINE [Concomitant]
     Active Substance: AMLODIPINE BESYLATE
  11. ESTRADIOL. [Concomitant]
     Active Substance: ESTRADIOL
  12. AZO CRANBERRY [Concomitant]
     Active Substance: DIETARY SUPPLEMENT
  13. ASPIRIN. [Concomitant]
     Active Substance: ASPIRIN

REACTIONS (7)
  - Diarrhoea [None]
  - Dizziness [None]
  - Dyspnoea [None]
  - Hyperhidrosis [None]
  - Heart rate increased [None]
  - Presyncope [None]
  - Faeces pale [None]

NARRATIVE: CASE EVENT DATE: 20180409
